FAERS Safety Report 8844650 (Version 1)
Quarter: 2012Q4

REPORT INFORMATION
  Report Type: Spontaneous
  Country: US (occurrence: None)
  Receive Date: 20121012
  Receipt Date: 20121012
  Transmission Date: 20130627
  Serious: Yes (Other)
  Sender: FDA-Public Use
  Company Number: 2012P1060506

PATIENT
  Age: 66 Year
  Sex: Female

DRUGS (8)
  1. PRIMIDONE [Suspect]
     Indication: SEIZURE
     Route: 048
  2. PRIMIDONE [Suspect]
     Indication: SEIZURE
     Route: 048
  3. PRIMIDONE [Concomitant]
     Dosage: 3 Tablets; QD; at 3 PM;
     Dates: end: 20120309
  4. PRIMIDONE [Concomitant]
     Dates: start: 20120309, end: 20120316
  5. MYSOLINE [Concomitant]
  6. MYCOMP [Concomitant]
  7. PICATO [Concomitant]
  8. BENTYL [Concomitant]

REACTIONS (6)
  - Rash generalised [None]
  - Skin cancer [None]
  - Fall [None]
  - Dizziness [None]
  - Migraine [None]
  - Balance disorder [None]
